FAERS Safety Report 18742401 (Version 1)
Quarter: 2021Q1

REPORT INFORMATION
  Report Type: Spontaneous
  Country: US (occurrence: US)
  Receive Date: 20210114
  Receipt Date: 20210114
  Transmission Date: 20210419
  Serious: Yes (Life-Threatening, Hospitalization)
  Sender: FDA-Public Use
  Company Number: US-FRESENIUS KABI-FK202100559

PATIENT
  Age: 35 Year
  Sex: Female

DRUGS (15)
  1. NORADRENALINE (MANUFACTURER UNKNOWN) [Suspect]
     Active Substance: NOREPINEPHRINE
     Indication: VENTRICULAR TACHYCARDIA
     Dosage: INFUSION AT 0.4 MICROG/KG/MINUTE
     Route: 065
  2. EPINEPHRINE. [Suspect]
     Active Substance: EPINEPHRINE
     Indication: VENTRICULAR TACHYCARDIA
     Dosage: INFUSION AT 0.04 MICROGRAM/KG/MINUTE
     Route: 065
  3. DOBUTAMINE [Suspect]
     Active Substance: DOBUTAMINE HYDROCHLORIDE
     Dosage: INFUSION INCREASED TO 7 MICROG/KG/MINUTE
     Route: 065
  4. EPOPROSTENOL. [Concomitant]
     Active Substance: EPOPROSTENOL
     Indication: PRODUCT USED FOR UNKNOWN INDICATION
     Route: 065
  5. VASOPRESSIN. [Suspect]
     Active Substance: VASOPRESSIN
     Indication: VENTRICULAR TACHYCARDIA
     Dosage: 0.03 UNITS/MINUTE
     Route: 065
  6. DOBUTAMINE [Suspect]
     Active Substance: DOBUTAMINE HYDROCHLORIDE
     Indication: VENTRICULAR TACHYCARDIA
     Dosage: INFUSION AT 6 MICROG/KG/MIN
     Route: 065
  7. PHENYLEPHRINE HYDROCHLORIDE INJECTION (MANUFACTURER UNKNOWN) [Suspect]
     Active Substance: PHENYLEPHRINE HYDROCHLORIDE
     Indication: VENTRICULAR TACHYCARDIA
     Dosage: 1.5 MICROG/KG/MINUTE
     Route: 065
  8. KETAMINE [Interacting]
     Active Substance: KETAMINE
     Indication: GENERAL ANAESTHESIA
     Route: 065
  9. PROCAINAMIDE HYDROCHLORIDE. [Concomitant]
     Active Substance: PROCAINAMIDE HYDROCHLORIDE
     Indication: VENTRICULAR TACHYCARDIA
     Route: 065
  10. FENTANYL. [Interacting]
     Active Substance: FENTANYL
     Indication: GENERAL ANAESTHESIA
     Route: 065
  11. PROPOFOL. [Interacting]
     Active Substance: PROPOFOL
     Indication: GENERAL ANAESTHESIA
     Route: 065
  12. ROCURONIUM [Concomitant]
     Active Substance: ROCURONIUM BROMIDE
     Indication: GENERAL ANAESTHESIA
     Route: 065
  13. KETAMINE [Interacting]
     Active Substance: KETAMINE
     Dosage: INFUSION AT 10 MG/HOUR, WHICH WAS CONTINUED THROUGHOUT THE PROCEDURE AND STOPPED ON POD?3
     Route: 065
  14. DEXMEDETOMIDINE. [Concomitant]
     Active Substance: DEXMEDETOMIDINE
     Indication: PRODUCT USED FOR UNKNOWN INDICATION
     Route: 065
  15. EPINEPHRINE. [Suspect]
     Active Substance: EPINEPHRINE
     Dosage: INFUSION INCREASED TO 0.06 MICROGRAM/KG/MINUTE
     Route: 065

REACTIONS (1)
  - Ventricular arrhythmia [Recovering/Resolving]
